FAERS Safety Report 15084325 (Version 1)
Quarter: 2018Q3

REPORT INFORMATION
  Report Type: Spontaneous
  Country: ZA (occurrence: ZA)
  Receive Date: 20180628
  Receipt Date: 20180628
  Transmission Date: 20181010
  Serious: Yes (Other)
  Sender: FDA-Public Use
  Company Number: ZA-PFIZER INC-2018258099

PATIENT
  Age: 66 Year
  Sex: Female

DRUGS (8)
  1. LOMANOR [Suspect]
     Active Substance: AMLODIPINE BESYLATE
     Dosage: 5 MG, UNK
  2. CO?DIOVAN [Suspect]
     Active Substance: HYDROCHLOROTHIAZIDE\VALSARTAN
     Dosage: 320/25 MG, UNK
  3. TREPILINE [Suspect]
     Active Substance: AMITRIPTYLINE
     Dosage: 10 MG, UNK
  4. FLAMARYX [Suspect]
     Active Substance: MELOXICAM
     Dosage: 15 MG, UNK
  5. ELTROXIN [Suspect]
     Active Substance: LEVOTHYROXINE
     Dosage: 100 UG, UNK
  6. MACRODANTIN [Suspect]
     Active Substance: NITROFURANTOIN
     Dosage: 100 MG, UNK
  7. ASPEN SIMVASTATIN [Suspect]
     Active Substance: SIMVASTATIN
     Dosage: 10 MG, UNK
  8. TRUSTAN [Suspect]
     Active Substance: ESOMEPRAZOLE
     Dosage: 40 MG, UNK

REACTIONS (1)
  - Hernia [Unknown]
